FAERS Safety Report 6186967-2 (Version None)
Quarter: 2009Q2

REPORT INFORMATION
  Report Type: 
  Country: None (occurrence: None)
  Receive Date: 20090512
  Receipt Date: 20090505
  Transmission Date: 20091009
  Serious: Yes (Other)
  Sender: FDA-Public Use
  Company Number: US-ELI_LILLY_AND_COMPANY-US200904003822

PATIENT
  Sex: Female
  Weight: 51.701 kg

DRUGS (3)
  1. FORTEO [Suspect]
     Indication: OSTEOPOROSIS
     Dosage: 20 UG, DAILY (1/D)
     Dates: start: 20070601
  2. HYDROCHLOROTHIAZIDE [Concomitant]
     Dosage: 25 MG, UNK
  3. THYROID TAB [Concomitant]
     Dosage: 65 MG, EACH MORNING

REACTIONS (1)
  - PUBIC RAMI FRACTURE [None]
